FAERS Safety Report 20939998 (Version 1)
Quarter: 2022Q2

REPORT INFORMATION
  Report Type: Spontaneous
  Country: None (occurrence: US)
  Receive Date: 20220609
  Receipt Date: 20220609
  Transmission Date: 20220721
  Serious: No
  Sender: FDA-Public Use
  Company Number: US-Jacobus Pharmaceutical Company, Inc.-2129669

PATIENT
  Age: 70 Year
  Sex: Male

DRUGS (1)
  1. RUZURGI [Suspect]
     Active Substance: AMIFAMPRIDINE
     Indication: Myasthenic syndrome
     Route: 048

REACTIONS (1)
  - Paraesthesia [Unknown]
